FAERS Safety Report 17811703 (Version 6)
Quarter: 2020Q3

REPORT INFORMATION
  Report Type: Spontaneous
  Country: US (occurrence: US)
  Receive Date: 20200521
  Receipt Date: 20200710
  Transmission Date: 20201102
  Serious: Yes (Life-Threatening, Hospitalization, Other)
  Sender: FDA-Public Use
  Company Number: US-PFIZER INC-2020201270

PATIENT
  Age: 60 Year
  Sex: Male
  Weight: 143.1 kg

DRUGS (3)
  1. PRECEDEX [Suspect]
     Active Substance: DEXMEDETOMIDINE HYDROCHLORIDE
     Indication: AGITATION
     Dosage: 1.9 UNK (MCG/KG/HR DOSING WEIGHT 158.2KG)
     Route: 042
     Dates: start: 20200506, end: 20200522
  2. PRECEDEX [Suspect]
     Active Substance: DEXMEDETOMIDINE HYDROCHLORIDE
     Dosage: 158.2 (158.2UGM/HR)
     Route: 041
  3. PRECEDEX [Suspect]
     Active Substance: DEXMEDETOMIDINE HYDROCHLORIDE
     Indication: SEDATIVE THERAPY
     Dosage: 400 MCG/100ML (STRENGTH?158.2MCG/HR CONTINUOUS INTRAVENOUS INFUSION)
     Route: 042
     Dates: start: 20200517, end: 20200517

REACTIONS (4)
  - Dysarthria [Not Recovered/Not Resolved]
  - Lethargy [Recovering/Resolving]
  - Product complaint [Unknown]
  - Blood pressure decreased [Recovered/Resolved]

NARRATIVE: CASE EVENT DATE: 20200517
